FAERS Safety Report 23372267 (Version 2)
Quarter: 2024Q1

REPORT INFORMATION
  Report Type: Spontaneous
  Country: US (occurrence: US)
  Receive Date: 20240105
  Receipt Date: 20240131
  Transmission Date: 20240410
  Serious: No
  Sender: FDA-Public Use
  Company Number: US-PFIZER INC-202400001006

PATIENT
  Age: 59 Year
  Sex: Male
  Weight: 87.982 kg

DRUGS (3)
  1. PAXLOVID [Suspect]
     Active Substance: NIRMATRELVIR\RITONAVIR
     Indication: COVID-19 treatment
     Dosage: [NIRMATRELVIR 300 MG]/[RITONAVIR 100 MG]; 2X/DAY
     Route: 048
     Dates: start: 20231222, end: 20231226
  2. MUCINEX [Concomitant]
     Active Substance: GUAIFENESIN
     Dosage: OCCASIONAL
     Dates: start: 20231223
  3. MUCINEX [Concomitant]
     Active Substance: GUAIFENESIN
     Dosage: OCCASIONAL
     Dates: start: 20231225

REACTIONS (2)
  - COVID-19 [Recovered/Resolved]
  - Disease recurrence [Recovered/Resolved]

NARRATIVE: CASE EVENT DATE: 20240101
